FAERS Safety Report 17042384 (Version 2)
Quarter: 2019Q4

REPORT INFORMATION
  Report Type: Report from Study
  Country: GB (occurrence: GB)
  Receive Date: 20191118
  Receipt Date: 20191127
  Transmission Date: 20200122
  Serious: Yes (Hospitalization)
  Sender: FDA-Public Use
  Company Number: GB-AMGEN-GBRCT2019187209

PATIENT

DRUGS (3)
  1. ALENDRONATE [Suspect]
     Active Substance: ALENDRONATE SODIUM
     Indication: OSTEOPOROSIS
     Dosage: 70 MILLIGRAM, QWK
     Route: 048
     Dates: start: 20170929, end: 20190731
  2. SODIUM FLUORIDE (18F) [Concomitant]
     Dosage: 250 MILLIGRAM
     Route: 042
     Dates: start: 20190831, end: 20190831
  3. DENOSUMAB [Suspect]
     Active Substance: DENOSUMAB
     Indication: OSTEOPOROSIS
     Dosage: UNK
     Route: 065

REACTIONS (1)
  - Aortic valve replacement [Recovered/Resolved]

NARRATIVE: CASE EVENT DATE: 20190819
